FAERS Safety Report 4461251-3 (Version None)
Quarter: 2004Q3

REPORT INFORMATION
  Report Type: 
  Country: None (occurrence: None)
  Receive Date: 20040923
  Receipt Date: 20040913
  Transmission Date: 20050211
  Serious: Yes (Death, Hospitalization, Other)
  Sender: FDA-Public Use
  Company Number: US-JNJFOC-20040903435

PATIENT
  Age: 52 Year
  Sex: Female

DRUGS (2)
  1. EXTRA STRENGTH TYLENOL PM (ACETAMINOPHEN/DIPHENHYDRAMINE HCL) UNSPECIF [Suspect]
     Indication: SUICIDE ATTEMPT
     Dosage: 70 DOSE (S)
  2. DIPHENHYDRAMINE (DIPHENHYDRAMINE) [Suspect]
     Indication: SUICIDE ATTEMPT
     Dosage: 20 DOSE (S)

REACTIONS (16)
  - ALANINE AMINOTRANSFERASE INCREASED [None]
  - AMMONIA INCREASED [None]
  - BILIRUBIN CONJUGATED INCREASED [None]
  - BLOOD ALKALINE PHOSPHATASE INCREASED [None]
  - BLOOD BILIRUBIN INCREASED [None]
  - BLOOD BILIRUBIN UNCONJUGATED INCREASED [None]
  - BLOOD GLUCOSE DECREASED [None]
  - BLOOD PH DECREASED [None]
  - BLOOD PRESSURE DECREASED [None]
  - GENERAL PHYSICAL HEALTH DETERIORATION [None]
  - INTENTIONAL OVERDOSE [None]
  - PROTEIN TOTAL DECREASED [None]
  - PUPIL FIXED [None]
  - RESPIRATORY FAILURE [None]
  - SUICIDE ATTEMPT [None]
  - TRANSAMINASES INCREASED [None]
